FAERS Safety Report 23101703 (Version 2)
Quarter: 2023Q4

REPORT INFORMATION
  Report Type: Spontaneous
  Country: US (occurrence: US)
  Receive Date: 20231025
  Receipt Date: 20231115
  Transmission Date: 20240110
  Serious: Yes (Other)
  Sender: FDA-Public Use
  Company Number: US-AUROBINDO-AUR-APL-2023-064350

PATIENT
  Age: 76 Year
  Sex: Male

DRUGS (6)
  1. TRANEXAMIC ACID [Suspect]
     Active Substance: TRANEXAMIC ACID
     Indication: Product used for unknown indication
     Dosage: 300 MILLIGRAM
     Route: 065
  2. PHENOBARBITAL [Concomitant]
     Active Substance: PHENOBARBITAL
     Indication: Myoclonus
     Dosage: 1000 MILLIGRAM
     Route: 065
  3. MIDAZOLAM [Concomitant]
     Active Substance: MIDAZOLAM
     Indication: Endotracheal intubation
     Dosage: 10 MILLIGRAM
     Route: 040
  4. MIDAZOLAM [Concomitant]
     Active Substance: MIDAZOLAM
     Dosage: 0.1 MCG/KG/MIN
     Route: 040
  5. ROCURONIUM [Concomitant]
     Active Substance: ROCURONIUM BROMIDE
     Indication: Endotracheal intubation
     Dosage: 30 MILLIGRAM
     Route: 065
  6. PROPOFOL [Concomitant]
     Active Substance: PROPOFOL
     Indication: Endotracheal intubation
     Dosage: 100 MCG/KG/MIN
     Route: 065

REACTIONS (12)
  - Ventricular tachycardia [Unknown]
  - Shock [Unknown]
  - Respiratory failure [Unknown]
  - Lactic acidosis [Unknown]
  - Hypoxia [Unknown]
  - Toxicity to various agents [Unknown]
  - Hypertension [Unknown]
  - Myoclonus [Unknown]
  - Tachycardia [Unknown]
  - Sinus tachycardia [Unknown]
  - Troponin [Unknown]
  - Wrong product administered [Unknown]
